FAERS Safety Report 8808108 (Version 1)
Quarter: 2012Q4

REPORT INFORMATION
  Report Type: 
  Country: US (occurrence: US)
  Receive Date: 20120925
  Receipt Date: 20120925
  Transmission Date: 20130627
  Serious: No
  Sender: FDA-Public Use
  Company Number: US-BAYER-2012-099365

PATIENT
  Age: 66 Year
  Sex: Female
  Weight: 60.77 kg

DRUGS (5)
  1. ALEVE CAPLET/TABLET,MIDOL EXTENDED RELIEF CAPLET [Suspect]
     Indication: ARTHRITIS
     Dosage: UNK UNK, PRN
     Route: 048
     Dates: start: 2010
  2. ALEVE GELCAP [Concomitant]
     Indication: ARTHRITIS
     Dosage: UNK, PRN
     Route: 048
     Dates: start: 2010
  3. OMEGA 3 [Concomitant]
  4. ANTIHYPERTENSIVES [Concomitant]
  5. WATER PILL [Concomitant]

REACTIONS (1)
  - Arthritis [None]
